FAERS Safety Report 8594544-9 (Version None)
Quarter: 2012Q3

REPORT INFORMATION
  Report Type: 
  Country: None (occurrence: None)
  Receive Date: 20120815
  Receipt Date: 20120808
  Transmission Date: 20120928
  Serious: Yes (Other)
  Sender: FDA-Public Use
  Company Number: DE-US-EMD SERONO, INC.-7149774

PATIENT
  Age: 54 Year
  Sex: Male

DRUGS (16)
  1. PREDNISOLONE [Suspect]
     Dates: start: 20090701, end: 20090701
  2. DOXEPIN [Suspect]
     Indication: INSOMNIA
     Route: 048
     Dates: end: 20081101
  3. DOXEPIN [Suspect]
     Route: 048
     Dates: end: 20110201
  4. ESCITALOPRAM [Concomitant]
     Indication: DEPRESSION
     Route: 048
     Dates: start: 20080701, end: 20090301
  5. REBIF [Suspect]
     Indication: MULTIPLE SCLEROSIS
     Route: 058
     Dates: start: 20080401
  6. PREDNISOLONE [Suspect]
     Route: 042
     Dates: start: 20080501, end: 20080501
  7. EDRONAX [Concomitant]
     Indication: DEPRESSION
     Route: 048
     Dates: start: 20090301, end: 20100101
  8. PREDNISOLONE [Suspect]
     Indication: MULTIPLE SCLEROSIS
     Route: 042
     Dates: start: 20080201, end: 20080201
  9. PREDNISOLONE [Suspect]
     Route: 042
     Dates: start: 20081201, end: 20081201
  10. DOXEPIN [Suspect]
     Route: 048
     Dates: start: 20081101
  11. GABAPENTIN [Concomitant]
     Indication: NEURALGIA
     Route: 048
     Dates: start: 20090901, end: 20091101
  12. DOXEPIN [Suspect]
     Indication: DEPRESSION
     Route: 048
     Dates: start: 20080801
  13. SYMBICORT [Concomitant]
     Indication: ASTHMA
     Dosage: PUFF
  14. REBIF [Suspect]
     Route: 058
     Dates: start: 20080201, end: 20080401
  15. PREDNISOLONE [Suspect]
     Route: 042
     Dates: start: 20080401, end: 20080401
  16. BERODUAL [Concomitant]
     Indication: ASTHMA
     Dosage: PUFF

REACTIONS (5)
  - HYPERTENSION [None]
  - WEIGHT INCREASED [None]
  - INSOMNIA [None]
  - MULTIPLE SCLEROSIS RELAPSE [None]
  - ANGINA PECTORIS [None]
